FAERS Safety Report 8873957 (Version 3)
Quarter: 2013Q2

REPORT INFORMATION
  Report Type: Spontaneous
  Country: US (occurrence: US)
  Receive Date: 20121030
  Receipt Date: 20130506
  Transmission Date: 20140414
  Serious: Yes (Disabling, Other)
  Sender: FDA-Public Use
  Company Number: US-009507513-1210USA008670

PATIENT
  Sex: Female
  Weight: 65.76 kg

DRUGS (2)
  1. FOSAMAX [Suspect]
     Indication: OSTEOPOROSIS
     Dosage: 10 MG, UNK
     Route: 048
     Dates: start: 19980513, end: 20100301
  2. FOSAMAX [Suspect]
     Indication: OSTEOPENIA
     Dosage: 70 MG, QW
     Route: 048
     Dates: end: 201007

REACTIONS (28)
  - Femur fracture [Unknown]
  - Low turnover osteopathy [Unknown]
  - Osteoporosis [Recovered/Resolved]
  - Stress fracture [Unknown]
  - Femur fracture [Recovering/Resolving]
  - Hypertension [Unknown]
  - Hyperlipidaemia [Unknown]
  - Type 2 diabetes mellitus [Unknown]
  - Fibromyalgia [Unknown]
  - Hypothyroidism [Unknown]
  - Crohn^s disease [Unknown]
  - Raynaud^s phenomenon [Unknown]
  - Hysterectomy [Unknown]
  - Presyncope [Recovered/Resolved]
  - Fall [Unknown]
  - Head injury [Unknown]
  - Injury [Unknown]
  - Cardiac flutter [Recovered/Resolved]
  - Dyspnoea exertional [Unknown]
  - Vitamin D deficiency [Unknown]
  - Dry eye [Unknown]
  - Glaucoma [Unknown]
  - Cataract [Unknown]
  - Rectal haemorrhage [Unknown]
  - Diarrhoea [Unknown]
  - Joint swelling [Recovered/Resolved]
  - Dyspepsia [Recovered/Resolved]
  - Pain in extremity [Recovering/Resolving]
